FAERS Safety Report 9838253 (Version 1)
Quarter: 2013Q4

REPORT INFORMATION
  Report Type: Spontaneous
  Country: US (occurrence: None)
  Receive Date: 20131205
  Receipt Date: 20131205
  Transmission Date: 20140711
  Serious: Yes (Hospitalization)
  Sender: FDA-Public Use
  Company Number: 163-POMAL-13081337

PATIENT
  Age: 62 Year
  Sex: Female
  Weight: 73 kg

DRUGS (5)
  1. POMALYST [Suspect]
     Indication: PLASMA CELL MYELOMA
     Dosage: 4 MG, 1 IN 1 D, PO, TEMPORARILY
     Route: 048
     Dates: start: 201305
  2. DEXAMETHASONE (DEXAMETHASONE) [Concomitant]
  3. COUMADIN (WARFARIN SODIUM) [Concomitant]
  4. ACYCLOVIR (ACICLOVIR [Concomitant]
  5. OXYCODONE/ACETAMINOPHEN (OXYCOCET) [Concomitant]

REACTIONS (1)
  - Pneumonia [None]
